FAERS Safety Report 13428319 (Version 1)
Quarter: 2017Q2

REPORT INFORMATION
  Report Type: Spontaneous
  Country: SE (occurrence: SE)
  Receive Date: 20170411
  Receipt Date: 20170411
  Transmission Date: 20170830
  Serious: Yes (Hospitalization)
  Sender: FDA-Public Use
  Company Number: SE-PFIZER INC-2017152916

PATIENT
  Age: 34 Year
  Sex: Female

DRUGS (13)
  1. STESOLID [Suspect]
     Active Substance: DIAZEPAM
     Dosage: 150 MG, DAILY
  2. PROMETHAZINE [Concomitant]
     Active Substance: PROMETHAZINE\PROMETHAZINE HYDROCHLORIDE
  3. LEVAXIN [Concomitant]
     Active Substance: LEVOTHYROXINE SODIUM
  4. CIRCADIN [Concomitant]
     Active Substance: MELATONIN
  5. NOZINAN [Concomitant]
     Active Substance: LEVOMEPROMAZINE
  6. THERALEN [Concomitant]
     Active Substance: TRIMEPRAZINE
  7. STESOLID [Suspect]
     Active Substance: DIAZEPAM
     Dosage: 100 X 10MG
     Route: 048
     Dates: start: 20150112, end: 20150112
  8. IMOVANE [Suspect]
     Active Substance: ZOPICLONE
     Dosage: APPROXIMATELY 90 TABLETS
     Route: 048
     Dates: start: 20150112, end: 20150112
  9. FENURIL [Concomitant]
  10. ATARAX [Concomitant]
     Active Substance: HYDROXYZINE HYDROCHLORIDE
  11. LYRICA [Suspect]
     Active Substance: PREGABALIN
     Dosage: APPROXIMATELY 40 UNITS A 75 MG
     Route: 048
     Dates: start: 20150112, end: 20150112
  12. CETIRIZIN BMM PHARMA [Concomitant]
  13. PROPAVAN [Concomitant]
     Active Substance: PROPIOMAZINE

REACTIONS (2)
  - Suicide attempt [Recovered/Resolved]
  - Toxicity to various agents [Recovered/Resolved]

NARRATIVE: CASE EVENT DATE: 20150112
